FAERS Safety Report 9148255 (Version 1)
Quarter: 2013Q1

REPORT INFORMATION
  Report Type: Report from Study
  Country: US (occurrence: US)
  Receive Date: 20130308
  Receipt Date: 20130308
  Transmission Date: 20140127
  Serious: No
  Sender: FDA-Public Use
  Company Number: US-009507513-1303USA003469

PATIENT
  Sex: Male

DRUGS (6)
  1. BOCEPREVIR [Suspect]
     Dosage: 200 MG, TID
     Route: 048
  2. RIBAVIRIN [Suspect]
     Dosage: 200 MG, UNK
     Route: 048
  3. PEGINTERFERON ALFA-2A [Suspect]
     Dosage: 180 MICROGRAM, UNK
  4. CENTRUM SILVER [Concomitant]
  5. LISINOPRIL [Concomitant]
  6. IBUPROFEN [Concomitant]

REACTIONS (1)
  - Therapeutic product ineffective [Unknown]
